FAERS Safety Report 7411883-5 (Version None)
Quarter: 2011Q2

REPORT INFORMATION
  Report Type: 
  Country: None (occurrence: None)
  Receive Date: 20110413
  Receipt Date: 20110405
  Transmission Date: 20111010
  Serious: Yes (Life-Threatening, Hospitalization)
  Sender: FDA-Public Use
  Company Number: US-BAXTER-2011BH008538

PATIENT
  Age: 64 Year
  Sex: Male
  Weight: 77 kg

DRUGS (11)
  1. GAMMAGARD LIQUID [Suspect]
     Indication: MYASTHENIA GRAVIS
     Route: 042
     Dates: start: 20110314, end: 20110316
  2. GAMMAGARD LIQUID [Suspect]
     Route: 042
     Dates: start: 20110314, end: 20110316
  3. PREDNISONE [Concomitant]
     Indication: MYASTHENIA GRAVIS
     Route: 048
     Dates: start: 20101107
  4. CELLCEPT [Concomitant]
     Indication: MYASTHENIA GRAVIS
     Route: 048
     Dates: start: 20110101
  5. GAMMAGARD LIQUID [Suspect]
     Route: 042
     Dates: start: 20100601
  6. GAMMAGARD LIQUID [Suspect]
     Route: 042
     Dates: start: 20100601
  7. GAMMAGARD LIQUID [Suspect]
     Indication: OFF LABEL USE
     Route: 042
     Dates: start: 20110314, end: 20110316
  8. GAMMAGARD LIQUID [Suspect]
     Route: 042
     Dates: start: 20110314, end: 20110316
  9. GAMMAGARD LIQUID [Suspect]
     Route: 042
     Dates: start: 20110314, end: 20110316
  10. GAMMAGARD LIQUID [Suspect]
     Route: 042
     Dates: start: 20110314, end: 20110316
  11. APAP TAB [Concomitant]
     Indication: PREMEDICATION
     Route: 048

REACTIONS (3)
  - DYSPNOEA [None]
  - PULMONARY EMBOLISM [None]
  - PNEUMONIA [None]
